FAERS Safety Report 10183405 (Version 1)
Quarter: 2014Q2

REPORT INFORMATION
  Report Type: Spontaneous
  Country: FR (occurrence: FR)
  Receive Date: 20140520
  Receipt Date: 20140520
  Transmission Date: 20141212
  Serious: Yes (Life-Threatening)
  Sender: FDA-Public Use
  Company Number: FR-ELI_LILLY_AND_COMPANY-FR201405003690

PATIENT
  Age: 72 Year
  Sex: Female

DRUGS (6)
  1. CYMBALTA [Suspect]
     Indication: DEPRESSION
     Dosage: 30 MG, UNKNOWN
     Route: 048
     Dates: end: 20130601
  2. ARICEPT [Suspect]
     Indication: DEMENTIA
     Dosage: 5 MG, QD
     Route: 048
     Dates: start: 20130219, end: 20130318
  3. FORTZAAR [Concomitant]
     Route: 065
  4. PREVISCAN                          /00789001/ [Concomitant]
     Dosage: 20 MG, UNK
     Route: 065
  5. TAHOR [Concomitant]
     Dosage: 20 MG, UNK
     Route: 065
  6. AMLOR [Concomitant]
     Dosage: 5 MG, UNK
     Route: 065

REACTIONS (6)
  - Hepatitis cholestatic [Recovered/Resolved]
  - Hemianopia [Recovered/Resolved]
  - Tremor [Recovered/Resolved]
  - Pollakiuria [Unknown]
  - Constipation [Unknown]
  - Hypoaesthesia [Recovered/Resolved]
